FAERS Safety Report 5606964-2 (Version None)
Quarter: 2008Q1

REPORT INFORMATION
  Report Type: 
  Country: None (occurrence: None)
  Receive Date: 20080111
  Receipt Date: 20070928
  Transmission Date: 20080703
  Serious: Yes (Other)
  Sender: FDA-Public Use
  Company Number: HQWYE355022JUL04

PATIENT
  Age: 45 Year
  Sex: Female

DRUGS (2)
  1. PREMPRO [Suspect]
     Dates: start: 19950101, end: 19970101
  2. PREMARIN [Suspect]
     Dates: start: 19890101, end: 19950101

REACTIONS (1)
  - BREAST CANCER [None]
